FAERS Safety Report 11828447 (Version 8)
Quarter: 2016Q3

REPORT INFORMATION
  Report Type: Spontaneous
  Country: US (occurrence: US)
  Receive Date: 20151211
  Receipt Date: 20160930
  Transmission Date: 20161109
  Serious: Yes (Hospitalization, Other)
  Sender: FDA-Public Use
  Company Number: US-PFIZER INC-2015431981

PATIENT
  Age: 65 Year
  Sex: Male
  Weight: 109 kg

DRUGS (35)
  1. BRILINTA [Suspect]
     Active Substance: TICAGRELOR
     Dosage: UNK
  2. BABY ASPIRIN [Suspect]
     Active Substance: ASPIRIN
     Dosage: 81 MG, UNK
  3. LISINOPRIL. [Suspect]
     Active Substance: LISINOPRIL
     Dosage: UNK
  4. SYNTHROID [Concomitant]
     Active Substance: LEVOTHYROXINE SODIUM
     Dosage: UNK
  5. HYDROCODONE [Concomitant]
     Active Substance: HYDROCODONE
     Dosage: UNK
  6. FUROSEMIDE. [Suspect]
     Active Substance: FUROSEMIDE
     Dosage: 20 MG, UNK
     Dates: start: 20160910
  7. TRADJENTA [Suspect]
     Active Substance: LINAGLIPTIN
     Dosage: UNK
  8. ASPIRIN. [Concomitant]
     Active Substance: ASPIRIN
     Dosage: 81 MG, UNK
  9. FLUOXETINE [Concomitant]
     Active Substance: FLUOXETINE HYDROCHLORIDE
     Dosage: 30 MG, UNK
  10. FLOMAX [Concomitant]
     Active Substance: TAMSULOSIN HYDROCHLORIDE
     Dosage: UNK
  11. AZITHROMYCIN ANHYDROUS. [Concomitant]
     Active Substance: AZITHROMYCIN ANHYDROUS
     Dosage: UNK
  12. TRUBIOTICS ONE A DAY [Concomitant]
     Dosage: UNK
  13. LASIX [Concomitant]
     Active Substance: FUROSEMIDE
     Dosage: 20 MG, UNK
     Dates: start: 20160910
  14. VANCOMYCIN [Concomitant]
     Active Substance: VANCOMYCIN
     Dosage: UNK
     Dates: start: 201604
  15. PROBIOTIC [Concomitant]
     Active Substance: PROBIOTICS NOS
     Dosage: UNK
  16. AFRIN [Concomitant]
     Active Substance: OXYMETAZOLINE
     Dosage: UNK
  17. ONDANSETRON [Concomitant]
     Active Substance: ONDANSETRON
     Indication: NAUSEA
     Dosage: UNK
  18. ATORVASTATIN CALCIUM. [Suspect]
     Active Substance: ATORVASTATIN CALCIUM
     Indication: BLOOD CHOLESTEROL ABNORMAL
     Dosage: UNK
  19. FLUOXETINE HYDROCHLORIDE. [Suspect]
     Active Substance: FLUOXETINE HYDROCHLORIDE
     Indication: DEPRESSION
     Dosage: 30 MG, UNK
     Dates: start: 20160418
  20. COUMADIN [Concomitant]
     Active Substance: WARFARIN SODIUM
     Dosage: UNK
     Dates: end: 20160219
  21. POTASSIUM [Concomitant]
     Active Substance: POTASSIUM
     Dosage: UNK
  22. CETIRIZINE [Concomitant]
     Active Substance: CETIRIZINE HYDROCHLORIDE
     Dosage: 10 MG, 1X/DAY
  23. METOPROLOL TARTRATE. [Suspect]
     Active Substance: METOPROLOL TARTRATE
     Dosage: UNK
  24. LASIX [Concomitant]
     Active Substance: FUROSEMIDE
     Indication: SWELLING
     Dosage: 80 MG, 2X/DAY
  25. PEPCID [Concomitant]
     Active Substance: FAMOTIDINE
     Dosage: UNK
  26. MVI [Concomitant]
     Active Substance: VITAMINS
     Dosage: UNK
  27. MUCINEX [Concomitant]
     Active Substance: GUAIFENESIN
     Dosage: UNK
  28. SPIRONOLACTONE. [Suspect]
     Active Substance: SPIRONOLACTONE
     Dosage: UNK
  29. WARFARIN [Suspect]
     Active Substance: WARFARIN
     Dosage: UNK
  30. DIGOXIN. [Concomitant]
     Active Substance: DIGOXIN
     Dosage: UNK, 2X/DAY
  31. IRON [Concomitant]
     Active Substance: IRON
     Dosage: UNK
  32. FOLIC ACID. [Concomitant]
     Active Substance: FOLIC ACID
     Dosage: UNK
  33. PROTONIX [Concomitant]
     Active Substance: PANTOPRAZOLE SODIUM
     Dosage: UNK
  34. JUVEN [Concomitant]
     Active Substance: .BETA.-HYDROXYISOVALERIC ACID\ARGININE\GLUTAMINE
     Dosage: UNK
  35. DICYCLOMINE [Concomitant]
     Active Substance: DICYCLOMINE HYDROCHLORIDE
     Indication: ABDOMINAL PAIN
     Dosage: UNK

REACTIONS (31)
  - Sepsis [Recovered/Resolved]
  - Peritoneal haematoma [Recovered/Resolved]
  - Dysphagia [Recovered/Resolved]
  - Impaired healing [Recovered/Resolved]
  - Injury [Recovered/Resolved]
  - Skin wound [Recovering/Resolving]
  - Abdominal pain upper [Not Recovered/Not Resolved]
  - Dysgeusia [Recovered/Resolved]
  - Decubitus ulcer [Recovered/Resolved]
  - Protein total decreased [Not Recovered/Not Resolved]
  - Haemoglobin decreased [Recovered/Resolved]
  - Thrombosis [Recovered/Resolved]
  - Blood pressure decreased [Recovered/Resolved]
  - Body temperature decreased [Recovered/Resolved]
  - Musculoskeletal discomfort [Recovered/Resolved]
  - Internal haemorrhage [Recovered/Resolved]
  - Diarrhoea [Recovered/Resolved]
  - Weight decreased [Recovered/Resolved]
  - Oedema [Unknown]
  - Haematoma [Recovered/Resolved]
  - Clostridium difficile infection [Recovered/Resolved]
  - Hyperventilation [Recovered/Resolved]
  - Peritoneal abscess [Recovered/Resolved]
  - Nephrolithiasis [Recovered/Resolved]
  - Abdominal infection [Recovered/Resolved]
  - Urine output decreased [Recovered/Resolved]
  - Rotator cuff syndrome [Recovered/Resolved]
  - Skin ulcer [Recovered/Resolved]
  - Brain natriuretic peptide increased [Not Recovered/Not Resolved]
  - Sinusitis [Unknown]
  - Constipation [Unknown]

NARRATIVE: CASE EVENT DATE: 20160229
